FAERS Safety Report 9929180 (Version 1)
Quarter: 2014Q1

REPORT INFORMATION
  Report Type: Spontaneous
  Country: US (occurrence: None)
  Receive Date: 20140225
  Receipt Date: 20140225
  Transmission Date: 20141002
  Serious: Yes (Death, Hospitalization)
  Sender: FDA-Public Use
  Company Number: US-INDICUS PHARMA-000232

PATIENT
  Age: 57 Year
  Sex: Female

DRUGS (1)
  1. METFORMIN HYDROCHLORIDE [Suspect]
     Indication: HYPERGLYCAEMIA

REACTIONS (6)
  - Lactic acidosis [None]
  - Cardiac arrest [None]
  - Ventricular tachycardia [None]
  - Myocardial infarction [None]
  - Respiratory failure [None]
  - Hypotension [None]
